FAERS Safety Report 16999980 (Version 6)
Quarter: 2022Q3

REPORT INFORMATION
  Report Type: Report from Study
  Country: US (occurrence: US)
  Receive Date: 20191106
  Receipt Date: 20220712
  Transmission Date: 20221027
  Serious: No
  Sender: FDA-Public Use
  Company Number: None

PATIENT
  Age: 4 Year
  Sex: Female
  Weight: 8.5 kg

DRUGS (1)
  1. ZOLGENSMA [Suspect]
     Active Substance: ONASEMNOGENE ABEPARVOVEC-XIOI
     Indication: Product used for unknown indication
     Dosage: 46.8 ML, ONCE/SINGLE
     Route: 042
     Dates: start: 20190719, end: 20190719

REACTIONS (5)
  - Bowel movement irregularity [Unknown]
  - COVID-19 [Unknown]
  - Vomiting [Unknown]
  - Weight decreased [Recovering/Resolving]
  - Aggression [Unknown]

NARRATIVE: CASE EVENT DATE: 20220413
